FAERS Safety Report 12658326 (Version 1)
Quarter: 2016Q3

REPORT INFORMATION
  Report Type: Report from Study
  Country: US (occurrence: US)
  Receive Date: 20160817
  Receipt Date: 20160817
  Transmission Date: 20161109
  Serious: Yes (Death, Other)
  Sender: FDA-Public Use
  Company Number: US-ROCHE-1813410

PATIENT
  Age: 62 Year
  Sex: Female
  Weight: 55.7 kg

DRUGS (8)
  1. METHOXY POLYETHYLENE GLYCOL-EPOETIN BETA [Concomitant]
     Active Substance: METHOXY POLYETHYLENE GLYCOL-EPOETIN BETA
     Route: 065
     Dates: start: 20090212, end: 20090217
  2. RITUXIMAB [Suspect]
     Active Substance: RITUXIMAB
     Indication: B-CELL LYMPHOMA
     Dosage: 5 TIMES
     Route: 042
     Dates: start: 20090125, end: 20090326
  3. SIROLIMUS. [Concomitant]
     Active Substance: SIROLIMUS
  4. CYCLOPHOSPHAMIDE. [Concomitant]
     Active Substance: CYCLOPHOSPHAMIDE
     Route: 065
     Dates: start: 20090205
  5. FLUDARABINE [Concomitant]
     Active Substance: FLUDARABINE PHOSPHATE
     Route: 065
     Dates: start: 20090206, end: 20090207
  6. FILGRASTIM [Concomitant]
     Active Substance: FILGRASTIM
     Route: 065
  7. SIROLIMUS. [Concomitant]
     Active Substance: SIROLIMUS
  8. TACROLIMUS. [Concomitant]
     Active Substance: TACROLIMUS

REACTIONS (6)
  - Asthenia [Unknown]
  - Exfoliative rash [Unknown]
  - Diarrhoea [Fatal]
  - Fatigue [Unknown]
  - Malaise [Unknown]
  - Lethargy [Unknown]

NARRATIVE: CASE EVENT DATE: 20090818
